FAERS Safety Report 15961533 (Version 1)
Quarter: 2019Q1

REPORT INFORMATION
  Report Type: Spontaneous
  Country: US (occurrence: US)
  Receive Date: 20190214
  Receipt Date: 20190214
  Transmission Date: 20190417
  Serious: Yes (Other)
  Sender: FDA-Public Use
  Company Number: None

PATIENT
  Age: 38 Year
  Sex: Female
  Weight: 64.35 kg

DRUGS (8)
  1. ESCITALOPRAM [Concomitant]
     Active Substance: ESCITALOPRAM OXALATE
  2. NYQUIL/DAYQUL [Concomitant]
  3. HALLS COUGH DROPS [Concomitant]
  4. LEVOFLOXACIN 500MG TAB ZYD= LEVAQUIN 500 MG TAB [Suspect]
     Active Substance: LEVOFLOXACIN
     Indication: PNEUMONIA
     Dosage: ?          QUANTITY:1 TABLET(S);?
     Route: 048
     Dates: start: 20190213
  5. AIMOVIG [Concomitant]
     Active Substance: ERENUMAB-AOOE
  6. TYLENOL [Concomitant]
     Active Substance: ACETAMINOPHEN
  7. HERBAL TEA [Concomitant]
  8. LEVOTHYROXINE. [Concomitant]
     Active Substance: LEVOTHYROXINE

REACTIONS (6)
  - Blood pressure decreased [None]
  - Cold sweat [None]
  - Hyperhidrosis [None]
  - Confusional state [None]
  - Nausea [None]
  - Hallucination [None]

NARRATIVE: CASE EVENT DATE: 20190214
